FAERS Safety Report 9314538 (Version 2)
Quarter: 2013Q2

REPORT INFORMATION
  Report Type: Spontaneous
  Country: GB (occurrence: GB)
  Receive Date: 20130529
  Receipt Date: 20130626
  Transmission Date: 20140414
  Serious: Yes (Other)
  Sender: FDA-Public Use
  Company Number: GB-PFIZER INC-2013161850

PATIENT
  Sex: Female

DRUGS (7)
  1. AMLODIPINE BESILATE [Suspect]
     Indication: HYPERTENSION
     Dosage: 10 MG, UNK
     Route: 048
     Dates: end: 20130515
  2. GLIBENCLAMIDE [Concomitant]
     Route: 065
  3. SITAGLIPTIN [Concomitant]
     Route: 065
  4. METFORMIN [Concomitant]
     Route: 065
  5. RAMIPRIL [Concomitant]
     Route: 065
  6. SIMVASTATIN [Concomitant]
     Route: 065
  7. FENOFIBRATE [Concomitant]
     Route: 065

REACTIONS (4)
  - Gingival hypertrophy [Not Recovered/Not Resolved]
  - Loose tooth [Unknown]
  - Discomfort [Unknown]
  - Gingival swelling [Unknown]
